FAERS Safety Report 18735856 (Version 2)
Quarter: 2021Q1

REPORT INFORMATION
  Report Type: Spontaneous
  Country: US (occurrence: US)
  Receive Date: 20210113
  Receipt Date: 20210114
  Transmission Date: 20210419
  Serious: Yes (Death)
  Sender: FDA-Public Use
  Company Number: US-PFIZER INC-2020498522

PATIENT
  Age: 60 Year
  Sex: Female

DRUGS (2)
  1. RUXIENCE [Suspect]
     Active Substance: RITUXIMAB-PVVR
     Indication: RETROPERITONEAL LYMPHADENOPATHY
  2. RUXIENCE [Suspect]
     Active Substance: RITUXIMAB-PVVR
     Indication: DIFFUSE LARGE B-CELL LYMPHOMA
     Dosage: 620 MG [Q (EVERY) 28 DAYS]

REACTIONS (1)
  - Death [Fatal]

NARRATIVE: CASE EVENT DATE: 20210102
